FAERS Safety Report 22632237 (Version 6)
Quarter: 2023Q4

REPORT INFORMATION
  Report Type: Report from Study
  Country: US (occurrence: US)
  Receive Date: 20230623
  Receipt Date: 20231101
  Transmission Date: 20240110
  Serious: No
  Sender: FDA-Public Use
  Company Number: US-002147023-NVSC2023US140756

PATIENT
  Sex: Male

DRUGS (3)
  1. ENTRESTO [Suspect]
     Active Substance: SACUBITRIL\VALSARTAN
     Indication: Product used for unknown indication
     Dosage: 1 DOSAGE FORM, BID
     Route: 065
     Dates: start: 20230529
  2. METOPROLOL [Suspect]
     Active Substance: METOPROLOL
     Indication: Product used for unknown indication
     Dosage: UNK, BID
     Route: 065
     Dates: start: 202304
  3. METOPROLOL [Suspect]
     Active Substance: METOPROLOL
     Dosage: UNK, QD
     Route: 065

REACTIONS (13)
  - Stress [Unknown]
  - Chest discomfort [Unknown]
  - Weight decreased [Unknown]
  - Dizziness postural [Recovering/Resolving]
  - Hypotension [Not Recovered/Not Resolved]
  - Nasopharyngitis [Recovered/Resolved]
  - Dehydration [Recovered/Resolved]
  - Contusion [Not Recovered/Not Resolved]
  - Cough [Unknown]
  - Throat irritation [Unknown]
  - Haemorrhagic diathesis [Recovering/Resolving]
  - Fatigue [Recovering/Resolving]
  - Dyspnoea [Unknown]

NARRATIVE: CASE EVENT DATE: 20230101
